FAERS Safety Report 8468737 (Version 13)
Quarter: 2019Q1

REPORT INFORMATION
  Report Type: Spontaneous
  Country: US (occurrence: US)
  Receive Date: 20120320
  Receipt Date: 20190301
  Transmission Date: 20190418
  Serious: Yes (Hospitalization, Disabling, Other)
  Sender: FDA-Public Use
  Company Number: US-ASTRAZENECA-2011SE32269

PATIENT
  Age: 55 Year
  Sex: Female
  Weight: 62.6 kg

DRUGS (79)
  1. NEXIUM [Suspect]
     Active Substance: ESOMEPRAZOLE MAGNESIUM
     Indication: GASTROOESOPHAGEAL REFLUX DISEASE
     Route: 048
     Dates: start: 200101, end: 200502
  2. NEXIUM [Suspect]
     Active Substance: ESOMEPRAZOLE MAGNESIUM
     Indication: GASTROOESOPHAGEAL REFLUX DISEASE
     Route: 048
     Dates: start: 2002, end: 2009
  3. KLONOPIN [Concomitant]
     Active Substance: CLONAZEPAM
     Dosage: 1.0MG UNKNOWN
     Dates: start: 20021105
  4. KLONOPIN [Concomitant]
     Active Substance: CLONAZEPAM
     Dosage: UNKNOWN
     Dates: start: 20080317
  5. LASIX [Concomitant]
     Active Substance: FUROSEMIDE
     Indication: SLEEP DISORDER
     Dates: start: 20080317
  6. LASIX [Concomitant]
     Active Substance: FUROSEMIDE
     Indication: DIURETIC THERAPY
     Route: 048
     Dates: start: 201004
  7. SPIRONOLACTONE/ALDACTONE [Concomitant]
     Dates: start: 20021105
  8. SYNTHROID [Concomitant]
     Active Substance: LEVOTHYROXINE SODIUM
     Indication: THYROID DISORDER
     Route: 048
     Dates: start: 201004
  9. ESTRACE/ESTRADIOL [Concomitant]
     Route: 048
     Dates: start: 201004
  10. ZETIA [Concomitant]
     Active Substance: EZETIMIBE
     Dates: start: 20060925
  11. AMITRIPTYLINE [Concomitant]
     Active Substance: AMITRIPTYLINE
     Indication: SLEEP DISORDER
     Dosage: 10.0MG UNKNOWN
     Dates: start: 19961227
  12. AMITRIPTYLINE [Concomitant]
     Active Substance: AMITRIPTYLINE
     Indication: SLEEP DISORDER
     Dosage: 25.0MG UNKNOWN
     Dates: start: 20060925
  13. CELEBREX [Concomitant]
     Active Substance: CELECOXIB
     Dates: start: 20010710
  14. PROMETHAZINE HYDROCHLORIDE. [Concomitant]
     Active Substance: PROMETHAZINE HYDROCHLORIDE
     Dosage: 1 TABLET 6-8 HRS AE PER NEED POST NAUSEA
  15. NEXIUM [Suspect]
     Active Substance: ESOMEPRAZOLE MAGNESIUM
     Indication: GASTROOESOPHAGEAL REFLUX DISEASE
     Route: 048
     Dates: start: 20060925
  16. SYNTHROID [Concomitant]
     Active Substance: LEVOTHYROXINE SODIUM
     Indication: THYROID DISORDER
     Dates: start: 20021105
  17. PROVERA [Concomitant]
     Active Substance: MEDROXYPROGESTERONE ACETATE
     Dosage: 10 MG FROM FIRST THROUGH THE TENTH DAY OF THE MONTH
     Dates: start: 19961227
  18. CLINDAMYCIN. [Concomitant]
     Active Substance: CLINDAMYCIN
     Indication: SINUSITIS
     Dates: start: 20021105
  19. MAG-OX [Concomitant]
     Active Substance: MAGNESIUM OXIDE
     Route: 048
     Dates: start: 201004
  20. ZOCOR [Concomitant]
     Active Substance: SIMVASTATIN
     Route: 048
     Dates: start: 201004
  21. NEXIUM [Suspect]
     Active Substance: ESOMEPRAZOLE MAGNESIUM
     Indication: GASTROOESOPHAGEAL REFLUX DISEASE
     Dosage: ONCE A DAY EVERYDAY
     Route: 048
     Dates: start: 2004, end: 2008
  22. METHYLPREDNISOLONE. [Concomitant]
     Active Substance: METHYLPREDNISOLONE
     Indication: JOINT SWELLING
     Dates: start: 2003
  23. LASIX [Concomitant]
     Active Substance: FUROSEMIDE
     Indication: SLEEP DISORDER
     Dates: start: 19961227
  24. LASIX [Concomitant]
     Active Substance: FUROSEMIDE
     Indication: DIURETIC THERAPY
     Dates: start: 20021105
  25. ESTRACE/ESTRADIOL [Concomitant]
     Dates: start: 20080317
  26. AMITRIPTYLINE [Concomitant]
     Active Substance: AMITRIPTYLINE
     Indication: SLEEP DISORDER
     Dosage: 50.0MG UNKNOWN
     Dates: start: 20060925
  27. PRILOSEC [Concomitant]
     Active Substance: OMEPRAZOLE MAGNESIUM
     Dates: start: 20021217
  28. CLARITIN [Concomitant]
     Active Substance: LORATADINE
     Dates: start: 20021105
  29. FLEXERIL [Concomitant]
     Active Substance: CYCLOBENZAPRINE HYDROCHLORIDE
     Dates: start: 20021105
  30. DARVOCET [Concomitant]
     Active Substance: ACETAMINOPHEN\PROPOXYPHENE HYDROCHLORIDE
  31. NEXIUM [Suspect]
     Active Substance: ESOMEPRAZOLE MAGNESIUM
     Indication: GASTROOESOPHAGEAL REFLUX DISEASE
     Route: 048
     Dates: start: 20060126
  32. KLONOPIN [Concomitant]
     Active Substance: CLONAZEPAM
     Dates: start: 19961227
  33. KLONOPIN [Concomitant]
     Active Substance: CLONAZEPAM
     Dosage: 0.5MG UNKNOWN
     Route: 048
     Dates: start: 201004
  34. LASIX [Concomitant]
     Active Substance: FUROSEMIDE
     Indication: DIURETIC THERAPY
     Dates: start: 20080317
  35. LASIX [Concomitant]
     Active Substance: FUROSEMIDE
     Indication: SLEEP DISORDER
     Route: 048
     Dates: start: 201004
  36. SPIRONOLACTONE/ALDACTONE [Concomitant]
     Dates: start: 19961227
  37. SPIRONOLACTONE/ALDACTONE [Concomitant]
     Dates: start: 20080317
  38. SYNTHROID [Concomitant]
     Active Substance: LEVOTHYROXINE SODIUM
     Indication: THYROID DISORDER
     Route: 048
  39. FOSAMAX [Concomitant]
     Active Substance: ALENDRONATE SODIUM
     Dosage: 70 MG PER WEEK
     Dates: start: 20060925
  40. RESTORIL [Concomitant]
     Active Substance: TEMAZEPAM
     Dosage: 30.0MG AS REQUIRED
     Route: 048
     Dates: start: 201004
  41. QUESTRAN [Concomitant]
     Active Substance: CHOLESTYRAMINE
     Route: 048
     Dates: start: 201004
  42. CLINORIL [Concomitant]
     Active Substance: SULINDAC
  43. TRAMADOL. [Concomitant]
     Active Substance: TRAMADOL
     Route: 048
     Dates: start: 20050823
  44. LASIX [Concomitant]
     Active Substance: FUROSEMIDE
     Indication: SLEEP DISORDER
     Dates: start: 20021105
  45. ACTIGALL/URSODIOL [Concomitant]
     Route: 048
     Dates: start: 201004
  46. ESTRACE/ESTRADIOL [Concomitant]
     Dates: start: 20021105
  47. ZAROXOLYN [Concomitant]
     Active Substance: METOLAZONE
     Dates: start: 20021105
  48. METHYLTESTOSTERONE. [Concomitant]
     Active Substance: METHYLTESTOSTERONE
     Dates: start: 20011029
  49. PREDNISONE. [Concomitant]
     Active Substance: PREDNISONE
     Dosage: 5.0MG UNKNOWN
     Dates: start: 20010525
  50. NEXIUM [Suspect]
     Active Substance: ESOMEPRAZOLE MAGNESIUM
     Indication: GASTROOESOPHAGEAL REFLUX DISEASE
     Route: 048
     Dates: start: 20050604
  51. MILK OF MAGNESIA [Concomitant]
     Active Substance: MAGNESIUM HYDROXIDE
  52. SPIRONOLACTONE/ALDACTONE [Concomitant]
     Route: 048
     Dates: start: 201004
  53. SYNTHROID [Concomitant]
     Active Substance: LEVOTHYROXINE SODIUM
     Indication: THYROID DISORDER
     Dates: start: 20080317
  54. PREMARIN [Concomitant]
     Active Substance: ESTROGENS, CONJUGATED
     Dates: start: 20060925
  55. ACTONEL [Concomitant]
     Active Substance: RISEDRONATE SODIUM
     Dates: start: 20021223
  56. PAXIL [Concomitant]
     Active Substance: PAROXETINE HYDROCHLORIDE
     Dates: start: 20021230
  57. MOBIC [Concomitant]
     Active Substance: MELOXICAM
     Route: 048
  58. KLONOPIN [Concomitant]
     Active Substance: CLONAZEPAM
     Dosage: 1.0MG UNKNOWN
     Dates: start: 20030411
  59. KLONOPIN [Concomitant]
     Active Substance: CLONAZEPAM
     Dosage: 0.5 MG 1 HS AND PRN UNKNOWN
     Dates: start: 20060925
  60. LASIX [Concomitant]
     Active Substance: FUROSEMIDE
     Indication: DIURETIC THERAPY
     Dates: start: 19961227
  61. SYNTHROID [Concomitant]
     Active Substance: LEVOTHYROXINE SODIUM
     Indication: THYROID DISORDER
     Dates: start: 19961227
  62. ACTIGALL/URSODIOL [Concomitant]
     Dates: start: 20060925
  63. ACTIGALL/URSODIOL [Concomitant]
     Dates: start: 20080317
  64. ACTIGALL/URSODIOL [Concomitant]
     Dates: start: 20021105
  65. AMITRIPTYLINE [Concomitant]
     Active Substance: AMITRIPTYLINE
     Indication: SLEEP DISORDER
     Dosage: UNKNOWN
     Dates: start: 20020205
  66. AMITRIPTYLINE [Concomitant]
     Active Substance: AMITRIPTYLINE
     Indication: SLEEP DISORDER
     Dosage: 50.0MG UNKNOWN
     Route: 048
     Dates: start: 201004
  67. PREVACID [Concomitant]
     Active Substance: LANSOPRAZOLE
     Dates: start: 19961227
  68. XENICAL [Concomitant]
     Active Substance: ORLISTAT
     Dates: start: 20030211
  69. PROTONIX [Concomitant]
     Active Substance: PANTOPRAZOLE SODIUM
     Dates: start: 20021105
  70. NORCO [Concomitant]
     Active Substance: ACETAMINOPHEN\HYDROCODONE BITARTRATE
     Dosage: 5 AND 325 MG TAKE 1 TO 2
  71. TUMS [Concomitant]
     Active Substance: CALCIUM CARBONATE
     Indication: DYSPEPSIA
  72. METHYLPREDNISOLONE. [Concomitant]
     Active Substance: METHYLPREDNISOLONE
     Indication: PERIPHERAL SWELLING
     Dates: start: 2003
  73. SPIRONOLACTONE/ALDACTONE [Concomitant]
     Dates: start: 20060925
  74. SYNTHROID [Concomitant]
     Active Substance: LEVOTHYROXINE SODIUM
     Indication: THYROID DISORDER
     Dates: start: 20060925
  75. PREMARIN [Concomitant]
     Active Substance: ESTROGENS, CONJUGATED
     Dates: start: 19961227
  76. LEXAPRO [Concomitant]
     Active Substance: ESCITALOPRAM OXALATE
     Dates: start: 20060925
  77. PRILOSEC [Concomitant]
     Active Substance: OMEPRAZOLE MAGNESIUM
     Dates: start: 20030507
  78. CELEBREX [Concomitant]
     Active Substance: CELECOXIB
     Route: 048
     Dates: start: 20021105
  79. CYCLOBENZAPRINE. [Concomitant]
     Active Substance: CYCLOBENZAPRINE
     Dosage: 10.0MG UNKNOWN
     Route: 048
     Dates: start: 20051019

REACTIONS (14)
  - Ankle fracture [Unknown]
  - Joint effusion [Unknown]
  - Chronic kidney disease [Unknown]
  - Joint dislocation [Unknown]
  - Osteoarthritis [Unknown]
  - Arthritis [Unknown]
  - Depression [Unknown]
  - Osteoporosis [Unknown]
  - Pain [Unknown]
  - Lower limb fracture [Unknown]
  - Renal injury [Unknown]
  - Fall [Unknown]
  - Cellulitis [Unknown]
  - Peripheral swelling [Unknown]

NARRATIVE: CASE EVENT DATE: 2003
